FAERS Safety Report 6501459-6 (Version None)
Quarter: 2009Q4

REPORT INFORMATION
  Report Type: 
  Country: None (occurrence: None)
  Receive Date: 20091215
  Receipt Date: 20091215
  Transmission Date: 20100525
  Serious: Yes (Other)
  Sender: FDA-Public Use
  Company Number: None

PATIENT
  Sex: Female
  Weight: 70.7611 kg

DRUGS (1)
  1. MIRENA [Suspect]

REACTIONS (4)
  - LIBIDO DECREASED [None]
  - MOOD ALTERED [None]
  - VULVOVAGINAL DRYNESS [None]
  - WEIGHT INCREASED [None]
